FAERS Safety Report 4519801-4 (Version None)
Quarter: 2004Q4

REPORT INFORMATION
  Report Type: 
  Country: None (occurrence: None)
  Receive Date: 20041202
  Receipt Date: 20041202
  Transmission Date: 20050328
  Serious: Yes (Hospitalization)
  Sender: FDA-Public Use
  Company Number: None

PATIENT
  Sex: Male
  Weight: 100 kg

DRUGS (7)
  1. IMATINIB MESYLATE 100MG CAPSULES, NOVARTIS [Suspect]
     Indication: GLIOBLASTOMA MULTIFORME
     Dosage: 600MG, PO QD
     Route: 048
     Dates: start: 20041106, end: 20041113
  2. TEMOZOLOMIDE, SCHERING-PLOUGH [Suspect]
     Indication: GLIOBLASTOMA MULTIFORME
     Dosage: 450MG, PO QD
     Route: 048
     Dates: start: 20041109, end: 20041113
  3. DECADRON [Concomitant]
  4. ZANTAC [Concomitant]
  5. OXYCONTIN [Concomitant]
  6. CELEXA [Concomitant]
  7. SYNTHROID [Concomitant]

REACTIONS (2)
  - DISEASE PROGRESSION [None]
  - GRAND MAL CONVULSION [None]
